FAERS Safety Report 6016353-7 (Version None)
Quarter: 2008Q4

REPORT INFORMATION
  Report Type: 
  Country: None (occurrence: None)
  Receive Date: 20081222
  Receipt Date: 20081212
  Transmission Date: 20090506
  Serious: Yes (Other)
  Sender: FDA-Public Use
  Company Number: DE-JNJFOC-20080203413

PATIENT
  Sex: Male

DRUGS (6)
  1. IONSYS [Suspect]
     Indication: PROCEDURAL PAIN
     Route: 044
  2. NOVALGIN [Concomitant]
     Route: 065
  3. SILYMARIN [Concomitant]
     Route: 065
  4. METOHEXAL [Concomitant]
     Route: 065
  5. BENALAPRIL [Concomitant]
     Route: 065
  6. CLEXANE [Concomitant]
     Route: 065

REACTIONS (1)
  - APPLICATION SITE NECROSIS [None]
